FAERS Safety Report 9541723 (Version 2)
Quarter: 2014Q1

REPORT INFORMATION
  Report Type: Spontaneous
  Country: US (occurrence: None)
  Receive Date: 20130524
  Receipt Date: 20130724
  Transmission Date: 20141002
  Serious: No
  Sender: FDA-Public Use
  Company Number: PHEH2012US023884

PATIENT
  Age: 47 Year
  Sex: Female
  Weight: 63.3 kg

DRUGS (8)
  1. GILENYA [Suspect]
     Indication: MULTIPLE SCLEROSIS
     Route: 048
     Dates: start: 20120126
  2. ADDERALL XR (AMFETAMINE ASPARTATE, AMFETAMINE SULFATE, DEXAMFETAMINE SULFATE) [Concomitant]
  3. DIAZEPAM [Concomitant]
  4. EFFEXOR XR (VENLAFIXINE HYDROCHLORIDE) [Concomitant]
  5. NEURONTIN (GABAPENTIN) [Concomitant]
  6. BACLOFEN [Concomitant]
  7. LORTAB (HYDROCODONE BITARTRATE, PARACETAMOL) [Concomitant]
  8. ZALEPLON [Concomitant]

REACTIONS (2)
  - Migraine [None]
  - Inappropriate schedule of drug administration [None]
